FAERS Safety Report 25973805 (Version 1)
Quarter: 2025Q4

REPORT INFORMATION
  Report Type: Spontaneous
  Country: US (occurrence: US)
  Receive Date: 20251029
  Receipt Date: 20251029
  Transmission Date: 20260117
  Serious: Yes (Other)
  Sender: COOPERSURGICAL
  Company Number: US-COOPERSURGICAL, INC.-2025CPS004510

PATIENT
  Sex: Female
  Weight: 63.492 kg

DRUGS (1)
  1. PARAGARD T 380A [Suspect]
     Active Substance: COPPER
     Indication: Contraception
     Dosage: UNK
     Route: 015
     Dates: start: 20100601, end: 20200605

REACTIONS (19)
  - Surgery [Recovered/Resolved]
  - Device breakage [Recovered/Resolved]
  - Foreign body in reproductive tract [Recovered/Resolved]
  - Complication of device removal [Recovered/Resolved]
  - Embedded device [Recovered/Resolved]
  - Procedural pain [Recovered/Resolved]
  - Emotional distress [Unknown]
  - Anxiety [Not Recovered/Not Resolved]
  - Cervix inflammation [Unknown]
  - Urinary tract infection [Unknown]
  - Cystitis [Unknown]
  - Coital bleeding [Unknown]
  - Menstruation irregular [Unknown]
  - Vaginal infection [Unknown]
  - Heavy menstrual bleeding [Unknown]
  - Pain [Unknown]
  - Dyspareunia [Unknown]
  - Abnormal uterine bleeding [Unknown]
  - Device dislocation [Recovered/Resolved]

NARRATIVE: CASE EVENT DATE: 20180101
